FAERS Safety Report 14277466 (Version 1)
Quarter: 2017Q4

REPORT INFORMATION
  Report Type: Spontaneous
  Country: US (occurrence: US)
  Receive Date: 20171212
  Receipt Date: 20171212
  Transmission Date: 20180321
  Serious: Yes (Other)
  Sender: FDA-Public Use
  Company Number: US-SHIRE-US201726614

PATIENT
  Sex: Female
  Weight: 54.42 kg

DRUGS (3)
  1. XIIDRA [Suspect]
     Active Substance: LIFITEGRAST
     Dosage: 5% SOLUTION
     Route: 047
     Dates: start: 2017
  2. XIIDRA [Suspect]
     Active Substance: LIFITEGRAST
     Indication: DRY EYE
     Dosage: 5% SOLUTION1 GTT, 2X/DAY:BID
     Route: 047
     Dates: start: 201707, end: 2017
  3. UNKNOWN [Concomitant]
     Active Substance: UNSPECIFIED INGREDIENT

REACTIONS (3)
  - Hypersensitivity [Unknown]
  - Sjogren^s syndrome [Unknown]
  - Condition aggravated [Unknown]
